FAERS Safety Report 15049423 (Version 1)
Quarter: 2018Q2

REPORT INFORMATION
  Report Type: Spontaneous
  Country: PL (occurrence: PL)
  Receive Date: 20180622
  Receipt Date: 20180622
  Transmission Date: 20180711
  Serious: Yes (Other)
  Sender: FDA-Public Use
  Company Number: PL-TEVA-2018-PL-912586

PATIENT
  Age: 58 Year
  Sex: Female

DRUGS (3)
  1. PACLITAXEL. [Suspect]
     Active Substance: PACLITAXEL
     Indication: PRODUCT USED FOR UNKNOWN INDICATION
     Route: 065
     Dates: start: 201706
  2. AVASTIN [Suspect]
     Active Substance: BEVACIZUMAB
     Indication: PRODUCT USED FOR UNKNOWN INDICATION
     Route: 065
     Dates: start: 201706
  3. CARBOPLATIN. [Suspect]
     Active Substance: CARBOPLATIN
     Indication: PRODUCT USED FOR UNKNOWN INDICATION
     Dosage: 6 AUC, THEN 5 AUC
     Route: 065
     Dates: start: 201706

REACTIONS (13)
  - Anaemia [Unknown]
  - Anxiety [Unknown]
  - Asthenia [Unknown]
  - Restlessness [Unknown]
  - Depressed mood [Unknown]
  - Blood pressure increased [Unknown]
  - Vomiting [Unknown]
  - Arthralgia [Unknown]
  - Ill-defined disorder [Unknown]
  - Tearfulness [Unknown]
  - Diarrhoea [Unknown]
  - Bone pain [Unknown]
  - Thrombocytopenia [Recovered/Resolved]
